FAERS Safety Report 18274425 (Version 2)
Quarter: 2020Q4

REPORT INFORMATION
  Report Type: Report from Study
  Country: CL (occurrence: CL)
  Receive Date: 20200916
  Receipt Date: 20201019
  Transmission Date: 20210113
  Serious: Yes (Other)
  Sender: FDA-Public Use
  Company Number: NVSC2019CL009847

PATIENT
  Age: 62 Year
  Sex: Female

DRUGS (3)
  1. COSENTYX [Suspect]
     Active Substance: SECUKINUMAB
     Dosage: 150 MG, QMO
     Route: 058
     Dates: start: 20190522
  2. COSENTYX [Suspect]
     Active Substance: SECUKINUMAB
     Indication: PSORIATIC ARTHROPATHY
     Dosage: 150 MG, QMO
     Route: 058
     Dates: start: 20190422
  3. COSENTYX [Suspect]
     Active Substance: SECUKINUMAB
     Dosage: 150 MG, QMO
     Route: 058
     Dates: start: 20190918, end: 20200715

REACTIONS (9)
  - Pyrexia [Unknown]
  - Depressed mood [Unknown]
  - Pain [Unknown]
  - Arthralgia [Unknown]
  - COVID-19 [Not Recovered/Not Resolved]
  - Nervousness [Unknown]
  - Anger [Unknown]
  - Cough [Unknown]
  - Psoriasis [Unknown]

NARRATIVE: CASE EVENT DATE: 2020
